FAERS Safety Report 15478207 (Version 1)
Quarter: 2018Q4

REPORT INFORMATION
  Report Type: Spontaneous
  Country: US (occurrence: US)
  Receive Date: 20181002
  Receipt Date: 20181002
  Transmission Date: 20190205
  Serious: No
  Sender: FDA-Public Use
  Company Number: None

PATIENT
  Age: 63 Year
  Sex: Male
  Weight: 164.25 kg

DRUGS (35)
  1. ROBAXIN 500 MG TAB [Concomitant]
  2. TRAMADOL 50 MG TAB [Concomitant]
  3. PROAIR MDI [Concomitant]
  4. NASONEX [Concomitant]
     Active Substance: MOMETASONE FUROATE
  5. ZANTAC [Concomitant]
     Active Substance: RANITIDINE HYDROCHLORIDE
  6. DOXAZOSIN MES TAB 4 MG [Concomitant]
  7. AMITRIPTYLINE HCL 100 MG TAB [Concomitant]
  8. MAXALT 10 MG [Concomitant]
  9. AZATHIOPRING 50MG TAB [Concomitant]
  10. PROTONIX 40 MG TAB [Concomitant]
  11. INCRUSE ELLIPTA [Concomitant]
     Active Substance: UMECLIDINIUM BROMIDE
  12. ALFUZOSIN HCL ER 10 MG [Concomitant]
  13. DIOVAN [Concomitant]
     Active Substance: VALSARTAN
  14. SINGULAIR [Concomitant]
     Active Substance: MONTELUKAST SODIUM
  15. ASPIRIN 325 MG TABS [Concomitant]
  16. AIMOVIG [Suspect]
     Active Substance: ERENUMAB-AOOE
     Indication: CLUSTER HEADACHE
     Dosage: ?          QUANTITY:1 INJECTION(S);OTHER FREQUENCY:MONTHLY;?
     Route: 030
     Dates: start: 20180822, end: 20180904
  17. ZYRTEC 10 MG TAB [Concomitant]
  18. ZETIA [Concomitant]
     Active Substance: EZETIMIBE
  19. NEURONTIN 300 MG TAB [Concomitant]
  20. KLOR-CON M20 TAB [Concomitant]
  21. CALCIUM CITRATE [Concomitant]
     Active Substance: CALCIUM CITRATE
  22. RESTASIS [Concomitant]
     Active Substance: CYCLOSPORINE
  23. TYLENOL 500 MG TAB [Concomitant]
  24. VASCEPA CAPS [Concomitant]
  25. NEURONTIN 600 MG TAB [Concomitant]
  26. IMITREX 6 MG [Concomitant]
  27. DALIRESP 500 MCG [Concomitant]
  28. COLACE 250 MG [Concomitant]
  29. HUMULIN R U-500 INSULIN [Concomitant]
  30. AMITRIPTYLINE HCL 25 MG TAB [Concomitant]
  31. LASIX 40 MG TAB [Concomitant]
  32. SULINDAC TAB 10 MG [Concomitant]
  33. BREO ELLIPTA [Concomitant]
     Active Substance: FLUTICASONE FUROATE\VILANTEROL TRIFENATATE
  34. ALPHAGAN P 0.1% DROPS [Concomitant]
  35. THERATEARS [Concomitant]
     Active Substance: CARBOXYMETHYLCELLULOSE SODIUM

REACTIONS (3)
  - Condition aggravated [None]
  - Cluster headache [None]
  - Inadequate analgesia [None]

NARRATIVE: CASE EVENT DATE: 20180904
